FAERS Safety Report 18373397 (Version 5)
Quarter: 2022Q1

REPORT INFORMATION
  Report Type: Spontaneous
  Country: US (occurrence: US)
  Receive Date: 20201012
  Receipt Date: 20220331
  Transmission Date: 20220424
  Serious: Yes (Other)
  Sender: FDA-Public Use
  Company Number: US-PFIZER INC-2019106966

PATIENT
  Age: 42 Year
  Sex: Male
  Weight: 99.79 kg

DRUGS (3)
  1. EFFEXOR XR [Suspect]
     Active Substance: VENLAFAXINE HYDROCHLORIDE
     Indication: Depression
     Dosage: 225 MG, DAILY
     Route: 048
     Dates: start: 2002
  2. EFFEXOR XR [Suspect]
     Active Substance: VENLAFAXINE HYDROCHLORIDE
     Indication: Bipolar disorder
     Dosage: 75 MG, 3X/DAY
     Route: 048
  3. EFFEXOR XR [Suspect]
     Active Substance: VENLAFAXINE HYDROCHLORIDE
     Indication: Generalised anxiety disorder
     Dosage: 225 MG, 1X/DAY (IN THE MORNING)
     Route: 048

REACTIONS (2)
  - Gastritis [Recovering/Resolving]
  - Ulcer [Recovering/Resolving]

NARRATIVE: CASE EVENT DATE: 20200831
